FAERS Safety Report 7535402 (Version 5)
Quarter: 2013Q3

REPORT INFORMATION
  Report Type: Report from Study
  Country: US (occurrence: US)
  Receive Date: 20100810
  Receipt Date: 20130816
  Transmission Date: 20140515
  Serious: Yes (Hospitalization)
  Sender: FDA-Public Use
  Company Number: US-ROCHE-647288

PATIENT
  Age: 42 Year
  Sex: Female
  Weight: 79 kg

DRUGS (10)
  1. BEVACIZUMAB [Suspect]
     Indication: HER-2 POSITIVE BREAST CANCER
     Dosage: DOSE LEVEL: 15MG/KG, DOSSAGE FROM: VIALS. PERMANENTLY DISCONTINUED.
     Route: 042
     Dates: start: 20090717, end: 20090904
  2. TRASTUZUMAB [Suspect]
     Indication: HER-2 POSITIVE BREAST CANCER
     Dosage: DOSE LEVEL 6MG/KG, DOSSAGE FORM: VIALS. LAST DOSE PRIOR TO SAE 16/OCT/2009.
     Route: 042
     Dates: start: 20090717
  3. CARBOPLATIN [Suspect]
     Indication: HER-2 POSITIVE BREAST CANCER
     Dosage: DOSE LEVEL: 6 AUC, DOSSAGE FORM: VIALS
     Route: 042
     Dates: start: 20090717
  4. DOCETAXEL [Suspect]
     Indication: HER-2 POSITIVE BREAST CANCER
     Dosage: 75MG/M2, FORM: VIAL
     Route: 042
     Dates: start: 20090717
  5. MOBIC [Concomitant]
  6. ALOXI [Concomitant]
     Route: 065
     Dates: start: 20090814, end: 20090814
  7. DECADRON [Concomitant]
     Route: 065
     Dates: start: 20090814, end: 20090814
  8. ZANTAC [Concomitant]
     Route: 065
     Dates: start: 20090814, end: 20090814
  9. ATIVAN [Concomitant]
     Route: 065
  10. COMPAZINE [Concomitant]
     Route: 065

REACTIONS (4)
  - Dehydration [Recovered/Resolved]
  - Staphylococcal skin infection [Not Recovered/Not Resolved]
  - Staphylococcal infection [Recovered/Resolved]
  - Neutropenic infection [Recovered/Resolved]
